FAERS Safety Report 7099389-7 (Version None)
Quarter: 2010Q4

REPORT INFORMATION
  Report Type: 
  Country: None (occurrence: None)
  Receive Date: 20101112
  Receipt Date: 20101029
  Transmission Date: 20110411
  Serious: Yes (Hospitalization)
  Sender: FDA-Public Use
  Company Number: DE-US-EMD SERONO, INC.-7023306

PATIENT
  Sex: Male
  Weight: 63 kg

DRUGS (2)
  1. REBIF [Suspect]
     Indication: MULTIPLE SCLEROSIS
     Route: 058
     Dates: start: 20100823, end: 20101009
  2. METAMIZOL [Concomitant]
     Route: 048
     Dates: start: 20100823, end: 20101009

REACTIONS (1)
  - HEPATIC FAILURE [None]
